FAERS Safety Report 6489705-9 (Version None)
Quarter: 2009Q4

REPORT INFORMATION
  Report Type: 
  Country: None (occurrence: None)
  Receive Date: 20091207
  Receipt Date: 20091120
  Transmission Date: 20100525
  Serious: Yes (Death)
  Sender: FDA-Public Use
  Company Number: 2009AL007408

PATIENT
  Age: 11 Month
  Sex: Female

DRUGS (5)
  1. TRAMADOL HCL [Suspect]
  2. AMITRIPTYLINE [Concomitant]
  3. MUSCLE RELAXANTS [Concomitant]
  4. ANTICONVULSANT [Concomitant]
  5. HYDROCODONE [Concomitant]

REACTIONS (2)
  - CONVULSION [None]
  - RESPIRATORY ARREST [None]
